FAERS Safety Report 10380554 (Version 1)
Quarter: 2014Q1

REPORT INFORMATION
  Report Type: Spontaneous
  Country: US (occurrence: None)
  Receive Date: 20140306
  Receipt Date: 20140306
  Transmission Date: 20141002
  Serious: Yes (Other)
  Sender: FDA-Public Use
  Company Number: 163-21880-13094597

PATIENT
  Age: 50 Year
  Sex: Female
  Weight: 63.05 kg

DRUGS (5)
  1. REVLIMID [Suspect]
     Indication: PLASMA CELL MYELOMA
     Route: 048
     Dates: start: 20121024
  2. DEXAMETHASONE [Concomitant]
  3. AREDIA (PAMIDRONATE DISODIUM) [Concomitant]
  4. SIMVASTIN [Concomitant]
  5. CALCIUM CITRATE [Concomitant]

REACTIONS (2)
  - Drug dose omission [None]
  - Gastroenteritis viral [None]
